FAERS Safety Report 6050587-0 (Version None)
Quarter: 2009Q1

REPORT INFORMATION
  Report Type: 
  Country: None (occurrence: None)
  Receive Date: 20090126
  Receipt Date: 20090114
  Transmission Date: 20090719
  Serious: Yes (Death)
  Sender: FDA-Public Use
  Company Number: US-PFIZER INC-2009157414

PATIENT
  Sex: Male
  Weight: 86.17 kg

DRUGS (3)
  1. MORPHINE SULFATE [Suspect]
  2. ALPRAZOLAM [Suspect]
  3. HYDROCODONE [Suspect]

REACTIONS (2)
  - HYPERTENSIVE HEART DISEASE [None]
  - MULTIPLE DRUG OVERDOSE [None]
